FAERS Safety Report 7905601-1 (Version None)
Quarter: 2011Q4

REPORT INFORMATION
  Report Type: 
  Country: None (occurrence: None)
  Receive Date: 20111110
  Receipt Date: 20111101
  Transmission Date: 20120403
  Serious: No
  Sender: FDA-Public Use
  Company Number: US-BIOGENIDEC-2011BI041942

PATIENT
  Age: 54 Year
  Sex: Female

DRUGS (1)
  1. TYSABRI [Suspect]
     Indication: MULTIPLE SCLEROSIS
     Route: 042
     Dates: start: 20080212

REACTIONS (8)
  - HEADACHE [None]
  - DIZZINESS [None]
  - RHINORRHOEA [None]
  - EAR PAIN [None]
  - PYREXIA [None]
  - CHILLS [None]
  - PAIN [None]
  - NAUSEA [None]
